FAERS Safety Report 4979365-8 (Version None)
Quarter: 2006Q2

REPORT INFORMATION
  Report Type: 
  Country: None (occurrence: None)
  Receive Date: 20060421
  Receipt Date: 20060109
  Transmission Date: 20061013
  Serious: Yes (Hospitalization, Disabling)
  Sender: FDA-Public Use
  Company Number: US-MERCK-0601USA00973

PATIENT
  Age: 48 Year
  Sex: Female
  Weight: 64 kg

DRUGS (2)
  1. VIOXX [Suspect]
     Indication: ARTHRITIS
     Route: 048
     Dates: start: 20000508, end: 20040901
  2. VIOXX [Suspect]
     Indication: JOINT STIFFNESS
     Route: 048
     Dates: start: 20000508, end: 20040901

REACTIONS (14)
  - CARDIAC DISORDER [None]
  - DEPRESSION [None]
  - DISTURBANCE IN ATTENTION [None]
  - DIZZINESS [None]
  - FATIGUE [None]
  - FIBROMYALGIA [None]
  - HYPERTENSION [None]
  - HYPOAESTHESIA [None]
  - INDIFFERENCE [None]
  - NECK INJURY [None]
  - NECK PAIN [None]
  - PAIN [None]
  - PALPITATIONS [None]
  - TRANSIENT ISCHAEMIC ATTACK [None]
